FAERS Safety Report 8866484 (Version 1)
Quarter: 2012Q4

REPORT INFORMATION
  Report Type: 
  Country: US (occurrence: US)
  Receive Date: 20121025
  Receipt Date: 20121025
  Transmission Date: 20130627
  Serious: Yes (Other)
  Sender: FDA-Public Use
  Company Number: US-ASTRAZENECA-2012SE80047

PATIENT
  Sex: Female

DRUGS (4)
  1. SEROQUEL [Suspect]
     Route: 048
  2. COUMADIN [Concomitant]
  3. PSYCH MEDICATIONS [Concomitant]
  4. PAIN MEDICATIONS [Concomitant]

REACTIONS (7)
  - Thrombosis [Unknown]
  - Ankle fracture [Unknown]
  - Pain [Unknown]
  - Sleep disorder [Unknown]
  - Depression [Unknown]
  - Panic attack [Unknown]
  - Emotional disorder [Unknown]
